FAERS Safety Report 23491854 (Version 1)
Quarter: 2024Q1

REPORT INFORMATION
  Report Type: Report from Study
  Country: US (occurrence: US)
  Receive Date: 20240207
  Receipt Date: 20240207
  Transmission Date: 20240410
  Serious: Yes (Other)
  Sender: FDA-Public Use
  Company Number: US-ABBVIE-5626481

PATIENT
  Sex: Female
  Weight: 71 kg

DRUGS (14)
  1. VENCLEXTA [Suspect]
     Active Substance: VENETOCLAX
     Indication: Acute myelomonocytic leukaemia
     Route: 048
     Dates: start: 20230901
  2. VENCLEXTA [Suspect]
     Active Substance: VENETOCLAX
     Indication: Acute myelomonocytic leukaemia
     Route: 048
     Dates: start: 20240129
  3. LEVOTHYROXINE [Concomitant]
     Active Substance: LEVOTHYROXINE\LEVOTHYROXINE SODIUM
     Indication: Thyroid disorder
     Dosage: DOSE 0.05 MG?START DATE: YEARS AGO
  4. LISINOPRIL [Concomitant]
     Active Substance: LISINOPRIL
     Indication: Hypertension
     Dosage: START DATE: YEARS AGO
  5. DACOGEN [Concomitant]
     Active Substance: DECITABINE
     Indication: Product used for unknown indication
     Dosage: TAKE 32 MG IV D1-5 Q MONTH; VIALS?FORM STRENGTH: 50 MILLIGRAM
     Route: 042
  6. ZUPLENZ [Concomitant]
     Active Substance: ONDANSETRON
     Indication: Vomiting
     Dosage: 8MG SOLUBLE FILM?FORM STRENGTH: 8 MILLIGRAM
  7. PYRIDOXINE HYDROCHLORIDE [Concomitant]
     Active Substance: PYRIDOXINE HYDROCHLORIDE
     Indication: Product used for unknown indication
     Dosage: EVERY MORNING?FORM STRENGTH: 50 MILLIGRAM
  8. ZOFRAN [Concomitant]
     Active Substance: ONDANSETRON HYDROCHLORIDE
     Indication: Vomiting
     Dosage: FORM STRENGTH: 8 MILLIGRAM
  9. METFORMIN [Concomitant]
     Active Substance: METFORMIN HYDROCHLORIDE
     Indication: Glucose tolerance impaired
     Dosage: START DATE: YEARS AGO
  10. ISONIAZID [Concomitant]
     Active Substance: ISONIAZID
     Indication: Product used for unknown indication
     Dosage: 3 TABLETS PO DAILY AM?FORM STRENGTH: 100 MILLIGRAM
     Route: 048
  11. RETACRIT [Concomitant]
     Active Substance: EPOETIN ALFA-EPBX
     Indication: Product used for unknown indication
     Dosage: 10000 UNIT/ML VIAL; INJECT 1000 SQQ WEEK IF HMG IS LESS THAN 10
  12. NYSTATIN [Concomitant]
     Active Substance: NYSTATIN
     Indication: Product used for unknown indication
     Dosage: TIME INTERVAL: 0.33333333 DAYS: 100000 UNIT/ML ;1 THREE TIMES A DAY GARGLE 2 MOUTH AND SWALLOW
  13. NYSTATIN [Concomitant]
     Active Substance: NYSTATIN
     Indication: Product used for unknown indication
     Dosage: 100000 UNIT/GRAM CREAM
  14. PRAVASTATIN [Concomitant]
     Active Substance: PRAVASTATIN
     Indication: Blood cholesterol abnormal
     Dosage: START DATE: YEARS AGO

REACTIONS (15)
  - Pancytopenia [Unknown]
  - Polycythaemia [Unknown]
  - Enzyme level abnormal [Unknown]
  - Acute kidney injury [Unknown]
  - Bradycardia [Unknown]
  - Hyperuricaemia [Unknown]
  - White blood cell count increased [Unknown]
  - Hypothyroidism [Unknown]
  - Hypertension [Unknown]
  - Type 2 diabetes mellitus [Unknown]
  - Haemorrhoids [Unknown]
  - Transaminases increased [Unknown]
  - Tooth disorder [Unknown]
  - Anaemia [Unknown]
  - Platelet count decreased [Unknown]
